FAERS Safety Report 9298901 (Version 1)
Quarter: 2013Q2

REPORT INFORMATION
  Report Type: Spontaneous
  Country: US (occurrence: US)
  Receive Date: 20130520
  Receipt Date: 20130520
  Transmission Date: 20140414
  Serious: No
  Sender: FDA-Public Use
  Company Number: US-SANOFI-AVENTIS-2012SA052538

PATIENT
  Sex: Female

DRUGS (1)
  1. APIDRA [Suspect]
     Dosage: 6 UNITS/MEAL DOSE:6 UNIT(S)
     Route: 058

REACTIONS (2)
  - Abdominal pain upper [Unknown]
  - Skin discolouration [Unknown]
